FAERS Safety Report 15053319 (Version 10)
Quarter: 2020Q1

REPORT INFORMATION
  Report Type: Spontaneous
  Country: US (occurrence: US)
  Receive Date: 20180622
  Receipt Date: 20200114
  Transmission Date: 20200409
  Serious: Yes (Hospitalization, Other)
  Sender: FDA-Public Use
  Company Number: US-ACTELION-A-NJ2018-173735

PATIENT
  Age: 2 Year
  Sex: Female
  Weight: 6.8 kg

DRUGS (9)
  1. SPIRONOLACTONE. [Concomitant]
     Active Substance: SPIRONOLACTONE
     Dosage: 15 MG, QD
     Route: 065
  2. TRACLEER [Suspect]
     Active Substance: BOSENTAN
     Dosage: 14.2 MG, BID
     Route: 048
  3. REVATIO [Suspect]
     Active Substance: SILDENAFIL CITRATE
     Indication: PRODUCT USED FOR UNKNOWN INDICATION
     Dosage: 2 MG/KG
     Route: 065
  4. LASIX [Concomitant]
     Active Substance: FUROSEMIDE
     Dosage: 10 MG, QD
     Route: 065
  5. TRACLEER [Suspect]
     Active Substance: BOSENTAN
     Indication: PULMONARY HYPERTENSION
     Dosage: 32 MG, BID
     Route: 048
  6. ALBUTEROL. [Concomitant]
     Active Substance: ALBUTEROL
     Dosage: 2.5 MG, Q4HRS
     Route: 055
  7. NACL [Concomitant]
     Active Substance: SODIUM CHLORIDE
     Dosage: 7 ML
     Route: 048
  8. CLONIDINE. [Concomitant]
     Active Substance: CLONIDINE
     Dosage: 10 MCG, BID
     Route: 065
  9. TRACLEER [Suspect]
     Active Substance: BOSENTAN
     Dosage: 2MG/KG DOSE
     Route: 048

REACTIONS (15)
  - Oxygen saturation decreased [Recovering/Resolving]
  - Sedation [Unknown]
  - No adverse event [Unknown]
  - Vomiting [Unknown]
  - Product dose omission [Unknown]
  - Pneumonia [Unknown]
  - Dyspnoea [Unknown]
  - Malaise [Recovered/Resolved]
  - Hospitalisation [Unknown]
  - Product use issue [Unknown]
  - Respiratory distress [Recovered/Resolved]
  - Influenza [Recovered/Resolved]
  - Gastrostomy [Unknown]
  - Pyrexia [Unknown]
  - Cough [Unknown]

NARRATIVE: CASE EVENT DATE: 20191218
